FAERS Safety Report 19259654 (Version 2)
Quarter: 2021Q2

REPORT INFORMATION
  Report Type: Spontaneous
  Country: IT (occurrence: IT)
  Receive Date: 20210514
  Receipt Date: 20210528
  Transmission Date: 20210717
  Serious: No
  Sender: FDA-Public Use
  Company Number: IT-TAKEDA-2021TUS030335

PATIENT
  Age: 65 Year
  Sex: Male

DRUGS (5)
  1. PYRIDOSTIGMINE [Suspect]
     Active Substance: PYRIDOSTIGMINE
     Indication: MUSCULAR WEAKNESS
  2. PYRIDOSTIGMINE [Suspect]
     Active Substance: PYRIDOSTIGMINE
     Indication: IMMUNE-MEDIATED MYOSITIS
     Dosage: 60 MILLIGRAM, QD
     Route: 065
  3. HUMAN NORMAL IMMUNOGLOBULIN [Suspect]
     Active Substance: HUMAN IMMUNOGLOBULIN G
     Indication: IMMUNE-MEDIATED MYOSITIS
     Dosage: 0.4 UNK, MILLIMOLE PER KILOGRAM
     Route: 042
  4. PREDNISONE. [Suspect]
     Active Substance: PREDNISONE
     Indication: MUSCULAR WEAKNESS
     Dosage: 1 MILLIGRAM/KILOGRAM, QD
     Route: 048
  5. PREDNISONE. [Suspect]
     Active Substance: PREDNISONE
     Indication: IMMUNE-MEDIATED MYOSITIS

REACTIONS (1)
  - Drug ineffective for unapproved indication [Unknown]
